FAERS Safety Report 14575633 (Version 5)
Quarter: 2018Q1

REPORT INFORMATION
  Report Type: Report from Study
  Country: US (occurrence: US)
  Receive Date: 20180227
  Receipt Date: 20180320
  Transmission Date: 20180509
  Serious: Yes (Hospitalization, Other)
  Sender: FDA-Public Use
  Company Number: PHEH2018US006858

PATIENT
  Sex: Male

DRUGS (9)
  1. GLEEVEC [Suspect]
     Active Substance: IMATINIB MESYLATE
     Indication: CHRONIC MYELOID LEUKAEMIA
     Dosage: 400 MG, QD
     Route: 065
  2. VITAMIN B12 [Concomitant]
     Active Substance: CYANOCOBALAMIN
     Indication: PRODUCT USED FOR UNKNOWN INDICATION
     Route: 065
  3. LABETALOL [Suspect]
     Active Substance: LABETALOL\LABETALOL HYDROCHLORIDE
     Indication: PRODUCT USED FOR UNKNOWN INDICATION
     Dosage: 1000 MG, UNK (2 TO 3 DAYS)
     Route: 065
  4. WARFARIN [Concomitant]
     Active Substance: WARFARIN
     Indication: PRODUCT USED FOR UNKNOWN INDICATION
     Route: 065
  5. PENICILLIN [Suspect]
     Active Substance: PENICILLIN
     Indication: PRODUCT USED FOR UNKNOWN INDICATION
     Route: 065
  6. PREDNISONE. [Suspect]
     Active Substance: PREDNISONE
     Indication: PRODUCT USED FOR UNKNOWN INDICATION
     Route: 065
  7. NEXIUM [Concomitant]
     Active Substance: ESOMEPRAZOLE MAGNESIUM
     Indication: PRODUCT USED FOR UNKNOWN INDICATION
     Route: 065
  8. COUMADIN [Suspect]
     Active Substance: WARFARIN SODIUM
     Indication: PRODUCT USED FOR UNKNOWN INDICATION
     Route: 065
  9. PRILOSEC [Concomitant]
     Active Substance: OMEPRAZOLE MAGNESIUM
     Indication: PRODUCT USED FOR UNKNOWN INDICATION
     Route: 065

REACTIONS (23)
  - Thrombosis [Unknown]
  - Varicose vein [Unknown]
  - Pancreatic cyst [Unknown]
  - Diarrhoea [Unknown]
  - Blood pressure increased [Unknown]
  - Dyspepsia [Unknown]
  - Back pain [Unknown]
  - Insomnia [Unknown]
  - Blood count abnormal [Unknown]
  - Pain in extremity [Unknown]
  - Lung infection [Unknown]
  - Pneumonia [Unknown]
  - Oxygen saturation decreased [Unknown]
  - Influenza [Unknown]
  - Dizziness [Unknown]
  - Flatulence [Unknown]
  - White blood cell count increased [Unknown]
  - Renal disorder [Unknown]
  - Gout [Unknown]
  - Sleep disorder [Unknown]
  - Immobile [Unknown]
  - Chest pain [Unknown]
  - Malaise [Unknown]
